FAERS Safety Report 16154315 (Version 1)
Quarter: 2019Q2

REPORT INFORMATION
  Report Type: Spontaneous
  Country: US (occurrence: US)
  Receive Date: 20190403
  Receipt Date: 20190403
  Transmission Date: 20190711
  Serious: Yes (Life-Threatening, Hospitalization)
  Sender: FDA-Public Use
  Company Number: US-MYLANLABS-2019M1030599

PATIENT
  Age: 50 Year
  Sex: Female
  Weight: 30 kg

DRUGS (1)
  1. METFORMIN [Suspect]
     Active Substance: METFORMIN HYDROCHLORIDE
     Indication: PRODUCT USED FOR UNKNOWN INDICATION
     Dosage: THE PATIENT HAD BEEN RECEIVING TWO 850MG TABLETS SEVERAL TIMES DAILY
     Route: 048

REACTIONS (20)
  - Renal tubular necrosis [Not Recovered/Not Resolved]
  - Confusional state [Recovering/Resolving]
  - Drug abuse [Recovering/Resolving]
  - Hypothermia [Recovering/Resolving]
  - Hallucination, visual [Recovering/Resolving]
  - Weight decreased [Recovering/Resolving]
  - Toxicity to various agents [Recovering/Resolving]
  - Metabolic acidosis [Recovering/Resolving]
  - Disorientation [Recovering/Resolving]
  - Prescription drug used without a prescription [Recovering/Resolving]
  - Hypotension [Recovered/Resolved]
  - Acute kidney injury [Not Recovered/Not Resolved]
  - Influenza like illness [Recovering/Resolving]
  - Lactic acidosis [Recovering/Resolving]
  - Cachexia [Recovering/Resolving]
  - Hepatic function abnormal [Unknown]
  - Oedema [Not Recovered/Not Resolved]
  - Apparent death [Recovering/Resolving]
  - Dyspnoea [Recovering/Resolving]
  - Shock [Recovered/Resolved]
